FAERS Safety Report 19885823 (Version 2)
Quarter: 2022Q4

REPORT INFORMATION
  Report Type: Spontaneous
  Country: US (occurrence: US)
  Receive Date: 20210927
  Receipt Date: 20221017
  Transmission Date: 20230113
  Serious: No
  Sender: FDA-Public Use
  Company Number: US-CELLTRION INC.-2021US002598

PATIENT

DRUGS (2)
  1. INFLECTRA [Suspect]
     Active Substance: INFLIXIMAB-DYYB
     Indication: Product used for unknown indication
     Dosage: 100MG/20ML, EVERY 8 WEEKS
     Route: 042
  2. INFLECTRA [Suspect]
     Active Substance: INFLIXIMAB-DYYB
     Dosage: 100MG/20ML IV EVERY 4 WEEKS

REACTIONS (6)
  - Condition aggravated [Unknown]
  - Diarrhoea [Unknown]
  - Unevaluable event [Unknown]
  - Treatment delayed [Unknown]
  - Product supply issue [Unknown]
  - Off label use [Unknown]
